FAERS Safety Report 5386314-X (Version None)
Quarter: 2007Q3

REPORT INFORMATION
  Report Type: 
  Country: None (occurrence: None)
  Receive Date: 20070713
  Receipt Date: 20070626
  Transmission Date: 20080115
  Serious: Yes (Other)
  Sender: FDA-Public Use
  Company Number: PHEH2007US09830

PATIENT
  Age: 65 Year
  Sex: Male

DRUGS (3)
  1. ZOMETA [Suspect]
     Indication: METASTASES TO BONE
     Dosage: ONCE MONTHLY
     Dates: start: 20050101, end: 20070101
  2. TAXOTERE [Concomitant]
  3. CHEMOTHERAPEUTICS NOS [Concomitant]

REACTIONS (2)
  - OSTEONECROSIS [None]
  - PAIN [None]
